FAERS Safety Report 17893481 (Version 2)
Quarter: 2020Q3

REPORT INFORMATION
  Report Type: Spontaneous
  Country: JP (occurrence: JP)
  Receive Date: 20200615
  Receipt Date: 20200904
  Transmission Date: 20201103
  Serious: Yes (Other)
  Sender: FDA-Public Use
  Company Number: JP-AMGEN-JPNSP2020094577

PATIENT
  Sex: Female

DRUGS (1)
  1. ENBREL [Suspect]
     Active Substance: ETANERCEPT
     Indication: PRODUCT USED FOR UNKNOWN INDICATION
     Dosage: UNK
     Route: 058
     Dates: end: 20200427

REACTIONS (7)
  - Urticaria [Unknown]
  - Injection site swelling [Unknown]
  - Injection site hypertrophy [Unknown]
  - Peripheral swelling [Unknown]
  - Weight decreased [Unknown]
  - Injection site induration [Unknown]
  - Injection site erythema [Unknown]
